FAERS Safety Report 5604518-5 (Version None)
Quarter: 2008Q1

REPORT INFORMATION
  Report Type: 
  Country: None (occurrence: None)
  Receive Date: 20080123
  Receipt Date: 20080123
  Transmission Date: 20080703
  Serious: No
  Sender: FDA-Public Use
  Company Number: None

PATIENT
  Age: 58 Year
  Sex: Female
  Weight: 92.0802 kg

DRUGS (1)
  1. LEVAQUIN [Suspect]
     Indication: SINUSITIS
     Dosage: 750 MG 1 TABLET DAILY PO
     Route: 048
     Dates: start: 20080107, end: 20080111

REACTIONS (4)
  - ASTHENIA [None]
  - MALAISE [None]
  - MUSCLE TIGHTNESS [None]
  - PAIN IN EXTREMITY [None]
